FAERS Safety Report 23384085 (Version 1)
Quarter: 2024Q1

REPORT INFORMATION
  Report Type: Spontaneous
  Country: US (occurrence: None)
  Receive Date: 20240109
  Receipt Date: 20240109
  Transmission Date: 20240409
  Serious: Yes (Other)
  Sender: FDA-Public Use
  Company Number: None

PATIENT
  Age: 12 Month
  Sex: Male
  Weight: 8.77 kg

DRUGS (6)
  1. SYNAGIS [Suspect]
     Active Substance: PALIVIZUMAB
     Indication: Cardiomyopathy
     Dosage: OTHER FREQUENCY : 15 MG/KG MONTHLY;?
     Route: 030
     Dates: start: 20231012, end: 20231212
  2. SYNAGIS [Suspect]
     Active Substance: PALIVIZUMAB
     Indication: Cardiac failure
  3. Amoxicillin 368 mg oral BID for 10 days [Concomitant]
     Dates: start: 20231209
  4. Captopril 4mg oral TID [Concomitant]
  5. Carvedilol 2mg oral BID [Concomitant]
  6. Spironolactone 6.26 mg oral daily [Concomitant]

REACTIONS (5)
  - Presyncope [None]
  - Crying [None]
  - Gait disturbance [None]
  - Eye movement disorder [None]
  - Staring [None]

NARRATIVE: CASE EVENT DATE: 20231212
